FAERS Safety Report 25199910 (Version 1)
Quarter: 2025Q2

REPORT INFORMATION
  Report Type: Spontaneous
  Country: US (occurrence: US)
  Receive Date: 20250415
  Receipt Date: 20250415
  Transmission Date: 20250717
  Serious: Yes (Other)
  Sender: NOVARTIS
  Company Number: US-002147023-NVSC2025US061484

PATIENT
  Age: 17 Year
  Sex: Female

DRUGS (1)
  1. IMATINIB [Suspect]
     Active Substance: IMATINIB
     Indication: Chronic myeloid leukaemia
     Dosage: 400 MG, QD
     Route: 065

REACTIONS (4)
  - Osteonecrosis [Unknown]
  - Atypical femur fracture [Recovering/Resolving]
  - Spondylolysis [Recovering/Resolving]
  - Foot fracture [Recovering/Resolving]
